FAERS Safety Report 8649480 (Version 2)
Quarter: 2012Q4

REPORT INFORMATION
  Report Type: 
  Country: US (occurrence: US)
  Receive Date: 20120705
  Receipt Date: 20121004
  Transmission Date: 20130627
  Serious: Yes (Hospitalization)
  Sender: FDA-Public Use
  Company Number: US-BAYER-2012-065117

PATIENT
  Age: 22 Year
  Sex: Female

DRUGS (8)
  1. YAZ [Suspect]
     Indication: CONTRACEPTION
     Dosage: UNK
     Dates: start: 200901
  2. YASMIN [Suspect]
     Dosage: UNK
     Dates: start: 200901
  3. PROPRANOLOL [Concomitant]
     Indication: HEART RATE IRREGULAR
  4. MORPHINE [Concomitant]
  5. ACETAMINOPHEN W/OXYCODONE [Concomitant]
  6. ONDANSETRON [Concomitant]
  7. DOCUSATE [Concomitant]
  8. SENNA [Concomitant]

REACTIONS (7)
  - Pulmonary embolism [None]
  - Pulmonary embolism [None]
  - Deep vein thrombosis [None]
  - Pain [None]
  - Fear [None]
  - Injury [None]
  - Pain [None]
